FAERS Safety Report 21553797 (Version 1)
Quarter: 2022Q4

REPORT INFORMATION
  Report Type: Report from Study
  Country: US (occurrence: US)
  Receive Date: 20221104
  Receipt Date: 20221104
  Transmission Date: 20230112
  Serious: No
  Sender: FDA-Public Use
  Company Number: US-ABBVIE-4168386

PATIENT
  Sex: Female
  Weight: 38.555 kg

DRUGS (14)
  1. CREON [Suspect]
     Active Substance: PANCRELIPASE AMYLASE\PANCRELIPASE LIPASE\PANCRELIPASE PROTEASE
     Indication: Pancreatectomy
     Dosage: TIME INTERVAL: 0.33333333 DAYS: STRENGTH: 24000 UNITS
     Route: 048
     Dates: start: 202101, end: 202112
  2. CREON [Suspect]
     Active Substance: PANCRELIPASE AMYLASE\PANCRELIPASE LIPASE\PANCRELIPASE PROTEASE
     Indication: Pancreatectomy
     Dosage: STRENGTH: 24000 UNITS
     Route: 048
     Dates: start: 20221011
  3. LEVOTHYROXINE [Concomitant]
     Active Substance: LEVOTHYROXINE
     Indication: Thyroid disorder
  4. MODERNA COVID-19 VACCINE [Concomitant]
     Active Substance: ELASOMERAN
     Indication: COVID-19 immunisation
     Dosage: 4TH DOSE
     Route: 030
     Dates: start: 20220803, end: 20220803
  5. MODERNA COVID-19 VACCINE [Concomitant]
     Active Substance: ELASOMERAN
     Indication: COVID-19 immunisation
     Dosage: 2ND DOSE
     Route: 030
     Dates: start: 20210317, end: 20210317
  6. MODERNA COVID-19 VACCINE [Concomitant]
     Active Substance: ELASOMERAN
     Indication: COVID-19 immunisation
     Dosage: 3RD DOSE
     Route: 030
     Dates: start: 20210824, end: 20210824
  7. MODERNA COVID-19 VACCINE [Concomitant]
     Active Substance: ELASOMERAN
     Indication: COVID-19 immunisation
     Dosage: 1ST DOSE
     Route: 030
     Dates: start: 20210217, end: 20210217
  8. MODERNA COVID-19 VACCINE [Concomitant]
     Active Substance: ELASOMERAN
     Indication: COVID-19 immunisation
     Dosage: 5TH DOSE
     Route: 030
     Dates: start: 20221008, end: 20221008
  9. CARBATROL [Concomitant]
     Active Substance: CARBAMAZEPINE
     Indication: Cardiac disorder
  10. EVISTA [Concomitant]
     Active Substance: RALOXIFENE HYDROCHLORIDE
     Indication: Bone disorder
  11. MELOXICAM [Concomitant]
     Active Substance: MELOXICAM
     Indication: Arthritis
  12. ENZYMEDICA DIGEST [Concomitant]
     Indication: Product used for unknown indication
     Dosage: GOLD ATP
  13. VALIUM [Concomitant]
     Active Substance: DIAZEPAM
     Indication: Nervous system disorder
  14. TRIAZOLAM [Concomitant]
     Active Substance: TRIAZOLAM
     Indication: Insomnia

REACTIONS (5)
  - Diarrhoea [Not Recovered/Not Resolved]
  - Weight decreased [Not Recovered/Not Resolved]
  - Gastrointestinal disorder [Not Recovered/Not Resolved]
  - Discomfort [Not Recovered/Not Resolved]
  - Hypophagia [Not Recovered/Not Resolved]
